FAERS Safety Report 9397223 (Version 1)
Quarter: 2013Q3

REPORT INFORMATION
  Report Type: Spontaneous
  Country: US (occurrence: US)
  Receive Date: 20130712
  Receipt Date: 20130712
  Transmission Date: 20140515
  Serious: No
  Sender: FDA-Public Use
  Company Number: US-GLAXOSMITHKLINE-A1023997A

PATIENT
  Age: 70 Year
  Sex: Female

DRUGS (1)
  1. JALYN [Suspect]
     Route: 048
     Dates: start: 20130517, end: 20130517

REACTIONS (1)
  - Accidental exposure to product [Unknown]
